FAERS Safety Report 5744147-6 (Version None)
Quarter: 2008Q2

REPORT INFORMATION
  Report Type: 
  Country: None (occurrence: None)
  Receive Date: 20080520
  Receipt Date: 20080516
  Transmission Date: 20081010
  Serious: Yes (Life-Threatening)
  Sender: FDA-Public Use
  Company Number: D0056084A

PATIENT

DRUGS (1)
  1. ZOVIRAX [Suspect]
     Indication: HERPES ZOSTER
     Dosage: 300MG THREE TIMES PER DAY
     Route: 065

REACTIONS (2)
  - ACCIDENTAL OVERDOSE [None]
  - RENAL FAILURE ACUTE [None]
